FAERS Safety Report 5409161-9 (Version None)
Quarter: 2007Q3

REPORT INFORMATION
  Report Type: 
  Country: None (occurrence: None)
  Receive Date: 20070713
  Receipt Date: 20070216
  Transmission Date: 20080115
  Serious: Yes (Hospitalization)
  Sender: FDA-Public Use
  Company Number: US-JNJFOC-20070204837

PATIENT
  Age: 34 Year
  Sex: Female
  Weight: 56.6996 kg

DRUGS (1)
  1. ORTHO EVRA [Suspect]
     Indication: CONTRACEPTION
     Dosage: 1 DOSE(S), 1 IN 1 WEEK, TRANSDERMAL
     Route: 062
     Dates: end: 20061225

REACTIONS (4)
  - BREAST TENDERNESS [None]
  - FEELING ABNORMAL [None]
  - HYPERTENSION [None]
  - MENSTRUAL DISORDER [None]
